FAERS Safety Report 5129976-4 (Version None)
Quarter: 2006Q4

REPORT INFORMATION
  Report Type: 
  Country: None (occurrence: None)
  Receive Date: 20061013
  Receipt Date: 20060929
  Transmission Date: 20070319
  Serious: Yes (Hospitalization)
  Sender: FDA-Public Use
  Company Number: 2006SP003366

PATIENT
  Age: 42 Year
  Sex: Male

DRUGS (2)
  1. PEGETRON (PEGINTEFERON ALFA-2B W/RIBAVIRIN) (PEGYLATED INTERFERON ALFA [Suspect]
     Indication: HEPATITIS C
     Dosage: 150 MCG;SC
     Route: 058
     Dates: start: 20060701, end: 20060927
  2. . [Concomitant]

REACTIONS (2)
  - MUSCULOSKELETAL DISCOMFORT [None]
  - PULMONARY EMBOLISM [None]
